FAERS Safety Report 8428951-1 (Version None)
Quarter: 2012Q2

REPORT INFORMATION
  Report Type: 
  Country: None (occurrence: None)
  Receive Date: 20120531
  Receipt Date: 20120523
  Transmission Date: 20120825
  Serious: Yes (Hospitalization)
  Sender: FDA-Public Use
  Company Number: 2012SP005705

PATIENT
  Sex: Male

DRUGS (4)
  1. ZOLOFT [Suspect]
     Indication: MATERNAL EXPOSURE DURING PREGNANCY
     Dosage: UNK;TRPL
  2. ZOLPIDEM TARTRATE [Suspect]
     Indication: MATERNAL EXPOSURE DURING PREGNANCY
     Dosage: UNK;TRPL
  3. ALPRAZOLAM [Suspect]
     Indication: MATERNAL EXPOSURE DURING PREGNANCY
     Dosage: UNK;TRPL
  4. MIRTAZAPINE [Suspect]
     Indication: MATERNAL EXPOSURE DURING PREGNANCY
     Dosage: UNK;TRPL

REACTIONS (9)
  - DRUG WITHDRAWAL SYNDROME NEONATAL [None]
  - DYSKINESIA NEONATAL [None]
  - MATERNAL DRUGS AFFECTING FOETUS [None]
  - VOMITING NEONATAL [None]
  - FEEDING DISORDER NEONATAL [None]
  - IRRITABILITY [None]
  - WEIGHT DECREASE NEONATAL [None]
  - JAUNDICE NEONATAL [None]
  - CRYING [None]
